FAERS Safety Report 9068087 (Version 1)
Quarter: 2013Q1

REPORT INFORMATION
  Report Type: Spontaneous
  Country: US (occurrence: US)
  Receive Date: 20130215
  Receipt Date: 20130215
  Transmission Date: 20140127
  Serious: No
  Sender: FDA-Public Use
  Company Number: US-BIOGENIDEC-2013BI013198

PATIENT
  Sex: Female

DRUGS (1)
  1. TYSABRI [Suspect]
     Indication: MULTIPLE SCLEROSIS
     Route: 042
     Dates: start: 20120814

REACTIONS (6)
  - Decreased immune responsiveness [Unknown]
  - Rash [Unknown]
  - Fatigue [Unknown]
  - Urinary tract infection [Unknown]
  - Constipation [Unknown]
  - Uhthoff^s phenomenon [Unknown]
